FAERS Safety Report 11991727 (Version 1)
Quarter: 2016Q1

REPORT INFORMATION
  Report Type: Spontaneous
  Country: US (occurrence: None)
  Receive Date: 20160202
  Receipt Date: 20160202
  Transmission Date: 20160526
  Serious: No
  Sender: FDA-Public Use
  Company Number: None

PATIENT
  Age: 30 Year
  Sex: Female

DRUGS (1)
  1. ANTI-BACTERIAL FOAMING [Suspect]
     Active Substance: TRICLOSAN
     Indication: PROPHYLAXIS
     Dates: start: 20010101, end: 20160131

REACTIONS (1)
  - Infertility [None]

NARRATIVE: CASE EVENT DATE: 20130301
